FAERS Safety Report 21064498 (Version 2)
Quarter: 2022Q3

REPORT INFORMATION
  Report Type: Spontaneous
  Country: JP (occurrence: JP)
  Receive Date: 20220711
  Receipt Date: 20220715
  Transmission Date: 20221027
  Serious: Yes (Other)
  Sender: FDA-Public Use
  Company Number: JP-BAYER-2022A092287

PATIENT
  Age: 3 Decade
  Sex: Male

DRUGS (1)
  1. IOPAMIRON [Suspect]
     Active Substance: IOPAMIDOL
     Indication: Angiogram cerebral
     Dosage: UNK UNK, ONCE
     Dates: start: 202206, end: 202206

REACTIONS (2)
  - Contrast encephalopathy [Recovering/Resolving]
  - Incorrect dose administered [Unknown]

NARRATIVE: CASE EVENT DATE: 20220601
